FAERS Safety Report 8590303-1 (Version None)
Quarter: 2012Q3

REPORT INFORMATION
  Report Type: 
  Country: None (occurrence: None)
  Receive Date: 20120813
  Receipt Date: 20120806
  Transmission Date: 20120928
  Serious: Yes (Other)
  Sender: FDA-Public Use
  Company Number: JP-GLAXOSMITHKLINE-B0814660A

PATIENT
  Sex: Female

DRUGS (5)
  1. CYCLOPHOSPHAMIDE [Concomitant]
     Route: 065
  2. RITUXIMAB [Concomitant]
  3. REVOLADE [Suspect]
     Indication: IDIOPATHIC THROMBOCYTOPENIC PURPURA
     Dosage: 12.5MG PER DAY
     Route: 048
     Dates: start: 20110913
  4. ONCOVIN [Concomitant]
  5. REVOLADE [Suspect]
     Dosage: 25MG PER DAY
     Route: 048

REACTIONS (3)
  - NON-HODGKIN'S LYMPHOMA RECURRENT [None]
  - PLATELET COUNT DECREASED [None]
  - PLATELET AGGREGATION [None]
